FAERS Safety Report 4443996-4 (Version None)
Quarter: 2004Q3

REPORT INFORMATION
  Report Type: 
  Country: None (occurrence: None)
  Receive Date: 20040729
  Receipt Date: 20031021
  Transmission Date: 20050211
  Serious: Yes (Other)
  Sender: FDA-Public Use
  Company Number: US-JNJFOC-20031004786

PATIENT
  Age: 10 Year
  Sex: Male

DRUGS (2)
  1. RISPERDAL [Suspect]
     Indication: BIPOLAR DISORDER
     Dosage: 0.25 MG, 2 IN 1 D, ORAL
     Route: 048
     Dates: start: 19991111, end: 20000905
  2. WELLBUTRIN [Concomitant]

REACTIONS (2)
  - CHOLELITHIASIS [None]
  - PSORIASIS [None]
